FAERS Safety Report 4274787-5 (Version None)
Quarter: 2004Q1

REPORT INFORMATION
  Report Type: 
  Country: None (occurrence: None)
  Receive Date: 20040116
  Receipt Date: 20040108
  Transmission Date: 20041129
  Serious: Yes (Disabling)
  Sender: FDA-Public Use
  Company Number: NLWYE391106NOV03

PATIENT
  Age: 42 Year
  Sex: Female

DRUGS (4)
  1. EFFEXOR [Suspect]
     Indication: ANALGESIC EFFECT
     Dosage: 75 MG 2X PER 1 DAY
     Route: 048
     Dates: start: 20020901
  2. OXAZEPAM [Concomitant]
  3. LORAZEPAM [Concomitant]
  4. ACETAMINOPHEN [Concomitant]

REACTIONS (3)
  - DIFFICULTY IN WALKING [None]
  - MOVEMENT DISORDER [None]
  - NECK PAIN [None]
